FAERS Safety Report 26140039 (Version 1)
Quarter: 2025Q4

REPORT INFORMATION
  Report Type: Spontaneous
  Country: CA (occurrence: CA)
  Receive Date: 20251210
  Receipt Date: 20251210
  Transmission Date: 20260118
  Serious: Yes (Other)
  Sender: JOHNSON AND JOHNSON
  Company Number: CA-JNJFOC-20251209319

PATIENT
  Age: 67 Year
  Sex: Female
  Weight: 57 kg

DRUGS (1)
  1. INFLIXIMAB [Suspect]
     Active Substance: INFLIXIMAB
     Indication: Ankylosing spondylitis
     Route: 041

REACTIONS (9)
  - Asthenia [Unknown]
  - Hypoaesthesia [Unknown]
  - Neuralgia [Unknown]
  - Condition aggravated [Unknown]
  - Crohn^s disease [Unknown]
  - Skin burning sensation [Unknown]
  - Headache [Unknown]
  - Intentional product use issue [Unknown]
  - Off label use [Unknown]
